FAERS Safety Report 5426197-2 (Version None)
Quarter: 2007Q3

REPORT INFORMATION
  Report Type: 
  Country: None (occurrence: None)
  Receive Date: 20070827
  Receipt Date: 20070820
  Transmission Date: 20080115
  Serious: Yes (Disabling)
  Sender: FDA-Public Use
  Company Number: B0471375A

PATIENT
  Age: 77 Year
  Sex: Male

DRUGS (7)
  1. REQUIP [Suspect]
     Indication: PARKINSON'S DISEASE
     Dosage: 3MG SEE DOSAGE TEXT
     Route: 048
     Dates: start: 20061201, end: 20070422
  2. PERMAX [Suspect]
     Indication: PARKINSON'S DISEASE
     Route: 065
     Dates: start: 20010901, end: 20061201
  3. NEODOPASTON [Concomitant]
     Indication: PARKINSON'S DISEASE
     Route: 048
     Dates: start: 20010901
  4. DROXIDOPA [Concomitant]
     Indication: ORTHOSTATIC HYPOTENSION
     Route: 048
     Dates: start: 20020601
  5. METLIGINE [Concomitant]
     Dosage: 4MG PER DAY
     Route: 048
     Dates: start: 20061201
  6. MADOPAR [Concomitant]
  7. COMTAN [Concomitant]
     Dosage: 300MG PER DAY
     Dates: start: 20070423

REACTIONS (5)
  - BRADYKINESIA [None]
  - GAIT DISTURBANCE [None]
  - HALLUCINATION [None]
  - TORTICOLLIS [None]
  - TREMOR [None]
